FAERS Safety Report 6967775-9 (Version None)
Quarter: 2010Q3

REPORT INFORMATION
  Report Type: 
  Country: None (occurrence: None)
  Receive Date: 20100907
  Receipt Date: 20100824
  Transmission Date: 20110219
  Serious: No
  Sender: FDA-Public Use
  Company Number: US-EISAI INC.-E7273-00181-CLI-US

PATIENT
  Sex: Male
  Weight: 64 kg

DRUGS (2)
  1. TARGRETIN [Suspect]
     Route: 048
     Dates: start: 20100608, end: 20100809
  2. SARGRAMOSTIM [Suspect]
     Route: 058
     Dates: start: 20100608, end: 20100809

REACTIONS (2)
  - FEBRILE NEUTROPENIA [None]
  - HAEMATOCRIT DECREASED [None]
